FAERS Safety Report 6390888-X (Version None)
Quarter: 2009Q4

REPORT INFORMATION
  Report Type: 
  Country: None (occurrence: None)
  Receive Date: 20091003
  Receipt Date: 20090922
  Transmission Date: 20100525
  Serious: Yes (Life-Threatening)
  Sender: FDA-Public Use
  Company Number: CN-JNJFOC-20090906236

PATIENT
  Sex: Female
  Weight: 49 kg

DRUGS (1)
  1. DECITABINE         (DECITABINE) [Suspect]
     Indication: MYELODYSPLASTIC SYNDROME
     Dosage: 22.2 MG, INTRAVENOUS
     Route: 042
     Dates: start: 20090825, end: 20090827

REACTIONS (4)
  - AGRANULOCYTOSIS [None]
  - ORAL INFECTION [None]
  - PNEUMONIA [None]
  - RHINITIS [None]
